FAERS Safety Report 17015657 (Version 2)
Quarter: 2019Q4

REPORT INFORMATION
  Report Type: Spontaneous
  Country: US (occurrence: US)
  Receive Date: 20191111
  Receipt Date: 20191114
  Transmission Date: 20200122
  Serious: Yes (Other)
  Sender: FDA-Public Use
  Company Number: US-SUNOVION-2019SUN004822

PATIENT
  Age: 73 Year
  Sex: Female

DRUGS (1)
  1. APTIOM [Suspect]
     Active Substance: ESLICARBAZEPINE ACETATE
     Dosage: 200 MG, BID
     Route: 048

REACTIONS (3)
  - Off label use [Unknown]
  - Trigeminal neuralgia [Unknown]
  - Cranial nerve decompression [Unknown]
